FAERS Safety Report 4876582-2 (Version None)
Quarter: 2006Q1

REPORT INFORMATION
  Report Type: 
  Country: None (occurrence: None)
  Receive Date: 20060110
  Receipt Date: 20051229
  Transmission Date: 20060701
  Serious: Yes (Other)
  Sender: FDA-Public Use
  Company Number: JP-BRISTOL-MYERS SQUIBB COMPANY-13238381

PATIENT
  Age: 36 Year
  Sex: Male

DRUGS (12)
  1. IFOMIDE [Suspect]
     Indication: TESTIS CANCER
  2. CISPLATIN [Suspect]
     Indication: TESTIS CANCER
  3. ETOPOSIDE [Suspect]
     Indication: TESTIS CANCER
  4. DOCETAXEL [Suspect]
     Indication: DRUG USE FOR UNKNOWN INDICATION
  5. CARBOPLATIN [Concomitant]
  6. DACTINOMYCIN [Concomitant]
  7. PACLITAXEL [Concomitant]
  8. IRINOTECAN HCL [Concomitant]
  9. GEMCITABINE [Concomitant]
  10. AQUPLA [Concomitant]
  11. BLEOMYCIN [Concomitant]
  12. METHOTREXATE [Concomitant]

REACTIONS (4)
  - ANAEMIA [None]
  - LEUKAEMIA [None]
  - MYELODYSPLASTIC SYNDROME [None]
  - PANCYTOPENIA [None]
